FAERS Safety Report 5807828-1 (Version None)
Quarter: 2008Q3

REPORT INFORMATION
  Report Type: 
  Country: None (occurrence: None)
  Receive Date: 20080711
  Receipt Date: 20080701
  Transmission Date: 20090109
  Serious: No
  Sender: FDA-Public Use
  Company Number: US-BOEHRINGER INGELHEIM GMBH, GERMANY-2008-BP-10275BP

PATIENT
  Sex: Female
  Weight: 77 kg

DRUGS (3)
  1. ZANTAC 150 [Suspect]
     Indication: DYSPEPSIA
     Route: 048
     Dates: start: 20070101
  2. VITAMIN TAB [Concomitant]
     Indication: PREGNANCY
     Route: 048
  3. IRON [Concomitant]
     Indication: ANAEMIA
     Route: 048
     Dates: start: 20080630

REACTIONS (1)
  - DRUG SCREEN POSITIVE [None]
